FAERS Safety Report 7760263-1 (Version None)
Quarter: 2011Q3

REPORT INFORMATION
  Report Type: 
  Country: None (occurrence: None)
  Receive Date: 20110919
  Receipt Date: 20110914
  Transmission Date: 20111222
  Serious: Yes (Other)
  Sender: FDA-Public Use
  Company Number: IL-GLAXOSMITHKLINE-B0747682A

PATIENT
  Age: 58 Year
  Sex: Female

DRUGS (2)
  1. TYKERB [Suspect]
     Indication: PRODUCT USED FOR UNKNOWN INDICATION
     Dosage: 1250MG PER DAY
     Route: 065
  2. XELODA [Concomitant]
     Route: 065

REACTIONS (2)
  - DYSPNOEA [None]
  - PLEURAL EFFUSION [None]
